FAERS Safety Report 5196919-7 (Version None)
Quarter: 2007Q1

REPORT INFORMATION
  Report Type: 
  Country: None (occurrence: None)
  Receive Date: 20070103
  Receipt Date: 20061222
  Transmission Date: 20070707
  Serious: Yes (Hospitalization, Other)
  Sender: FDA-Public Use
  Company Number: US-BRISTOL-MYERS SQUIBB COMPANY-13605449

PATIENT
  Age: 50 Year
  Sex: Female
  Weight: 61 kg

DRUGS (16)
  1. CETUXIMAB [Suspect]
     Indication: SQUAMOUS CELL CARCINOMA OF THE CERVIX
     Route: 042
     Dates: start: 20060803, end: 20060803
  2. CISPLATIN [Suspect]
     Indication: SQUAMOUS CELL CARCINOMA OF THE CERVIX
     Dates: start: 20060803, end: 20060803
  3. RADIATION THERAPY [Suspect]
     Indication: SQUAMOUS CELL CARCINOMA OF THE CERVIX
     Dates: start: 20060803, end: 20060803
  4. OPIUM TINCTURE [Concomitant]
  5. SIMETHICONE [Concomitant]
     Route: 048
  6. CLONAZEPAM [Concomitant]
     Route: 048
  7. DIPHENOXYLATE HCL + ATROPINE SULFATE [Concomitant]
     Route: 048
  8. FAMOTIDINE [Concomitant]
     Route: 048
  9. LOPERAMIDE HCL [Concomitant]
     Route: 048
  10. MIRTAZAPINE [Concomitant]
     Route: 048
  11. ENSURE [Concomitant]
     Route: 048
  12. VENLAFAXINE HCL [Concomitant]
     Route: 048
  13. LEVOTHYROXINE SODIUM [Concomitant]
     Route: 048
  14. PROCHLORPERAZINE [Concomitant]
     Route: 048
  15. LORAZEPAM [Concomitant]
     Route: 048
  16. TIOTROPIUM BROMIDE [Concomitant]

REACTIONS (7)
  - ABDOMINAL PAIN [None]
  - DEEP VEIN THROMBOSIS [None]
  - DIARRHOEA [None]
  - ENTERITIS [None]
  - HYPOKALAEMIA [None]
  - NAUSEA [None]
  - VOMITING [None]
